FAERS Safety Report 12336630 (Version 1)
Quarter: 2016Q2

REPORT INFORMATION
  Report Type: Report from Study
  Country: MX (occurrence: MX)
  Receive Date: 20160505
  Receipt Date: 20160505
  Transmission Date: 20160815
  Serious: Yes (Death)
  Sender: FDA-Public Use
  Company Number: MX-ROCHE-1752701

PATIENT
  Age: 47 Year
  Weight: 58 kg

DRUGS (4)
  1. DOXORUBICIN [Suspect]
     Active Substance: DOXORUBICIN
     Indication: BREAST CANCER
     Dosage: 6 CYCLES ADMINISTERED
     Route: 065
     Dates: start: 20160110, end: 20160423
  2. CYCLOPHOSPHAMIDE. [Suspect]
     Active Substance: CYCLOPHOSPHAMIDE
     Indication: BREAST CANCER
     Dosage: 6 CYCLES ADMINISTERED
     Route: 065
     Dates: start: 20160110, end: 20160423
  3. PACLITAXEL. [Suspect]
     Active Substance: PACLITAXEL
     Indication: BREAST CANCER
     Dosage: 6 CYCLES ADMINISTERED
     Route: 065
     Dates: start: 20160110, end: 20160423
  4. TRASTUZUMAB [Suspect]
     Active Substance: TRASTUZUMAB
     Indication: BREAST CANCER
     Dosage: 6 CYCLES ADMINISTERED, DOSE-348 MG (6 MG/KG)
     Route: 065
     Dates: start: 20160110, end: 20160423

REACTIONS (2)
  - Off label use [Fatal]
  - Death [Fatal]
